FAERS Safety Report 13964283 (Version 1)
Quarter: 2017Q3

REPORT INFORMATION
  Report Type: Report from Study
  Country: US (occurrence: US)
  Receive Date: 20170913
  Receipt Date: 20170913
  Transmission Date: 20171128
  Serious: Yes (Hospitalization)
  Sender: FDA-Public Use
  Company Number: US-BAYER-2017-169168

PATIENT
  Age: 50 Year
  Sex: Female

DRUGS (1)
  1. GADOLINIUM [Suspect]
     Active Substance: GADOLINIUM
     Dosage: UNK, ONCE

REACTIONS (3)
  - POEMS syndrome [None]
  - Fibromyalgia [None]
  - Gadolinium deposition disease [None]
